FAERS Safety Report 23632235 (Version 1)
Quarter: 2024Q1

REPORT INFORMATION
  Report Type: Spontaneous
  Country: US (occurrence: US)
  Receive Date: 20240314
  Receipt Date: 20240314
  Transmission Date: 20240410
  Serious: No
  Sender: FDA-Public Use
  Company Number: US-BEH-2024169365

PATIENT
  Age: 62 Year
  Sex: Female

DRUGS (4)
  1. HIZENTRA [Suspect]
     Active Substance: HUMAN IMMUNOGLOBULIN G
     Indication: Immunodeficiency common variable
     Dosage: 10 GRAM, QW
     Route: 058
  2. HIZENTRA [Suspect]
     Active Substance: HUMAN IMMUNOGLOBULIN G
     Dosage: 10 GRAM, QW
     Route: 058
     Dates: start: 20240124
  3. HIZENTRA [Suspect]
     Active Substance: HUMAN IMMUNOGLOBULIN G
     Dosage: 10 GRAM, QW
     Route: 058
     Dates: start: 20240131
  4. HIZENTRA [Suspect]
     Active Substance: HUMAN IMMUNOGLOBULIN G
     Dosage: 10 GRAM, QW
     Route: 058
     Dates: start: 20240207

REACTIONS (12)
  - Headache [Unknown]
  - Brain fog [Unknown]
  - Photophobia [Unknown]
  - Asthenia [Unknown]
  - Headache [Unknown]
  - Brain fog [Unknown]
  - Photophobia [Unknown]
  - Asthenia [Unknown]
  - Headache [Unknown]
  - Brain fog [Unknown]
  - Photophobia [Unknown]
  - Asthenia [Unknown]

NARRATIVE: CASE EVENT DATE: 20240124
